FAERS Safety Report 8245940-0 (Version None)
Quarter: 2012Q1

REPORT INFORMATION
  Report Type: 
  Country: None (occurrence: None)
  Receive Date: 20120330
  Receipt Date: 20120326
  Transmission Date: 20120608
  Serious: No
  Sender: FDA-Public Use
  Company Number: US-PFIZER INC-2012044160

PATIENT
  Sex: Male
  Weight: 79.365 kg

DRUGS (4)
  1. TIKOSYN [Suspect]
     Indication: ATRIAL FLUTTER
     Dosage: 125 UG, 2X/DAY
     Route: 048
     Dates: start: 20080910, end: 20090901
  2. BENAZEPRIL [Concomitant]
     Indication: HYPERTENSION
     Dosage: UNK
  3. TIKOSYN [Suspect]
     Dosage: 250 UG, 2X/DAY
     Route: 048
     Dates: start: 20091001
  4. NORVASC [Concomitant]
     Indication: HYPERTENSION
     Dosage: UNK

REACTIONS (1)
  - ATRIAL FLUTTER [None]
